FAERS Safety Report 7573372-7 (Version None)
Quarter: 2011Q2

REPORT INFORMATION
  Report Type: 
  Country: None (occurrence: None)
  Receive Date: 20110627
  Receipt Date: 20110623
  Transmission Date: 20111010
  Serious: Yes (Death)
  Sender: FDA-Public Use
  Company Number: PHHY2011US56029

PATIENT
  Sex: Male

DRUGS (2)
  1. ARICEPT [Suspect]
  2. EXELON [Suspect]
     Route: 062

REACTIONS (2)
  - DRUG INEFFECTIVE [None]
  - DEATH [None]
